FAERS Safety Report 23720309 (Version 1)
Quarter: 2024Q2

REPORT INFORMATION
  Report Type: Spontaneous
  Country: US (occurrence: US)
  Receive Date: 20240408
  Receipt Date: 20240408
  Transmission Date: 20240716
  Serious: No
  Sender: FDA-Public Use
  Company Number: US-SA-SAC20240402001280

PATIENT
  Age: 17 Year
  Sex: Male

DRUGS (1)
  1. DUPIXENT [Suspect]
     Active Substance: DUPILUMAB
     Dosage: 300 MG, QOW
     Route: 058

REACTIONS (5)
  - Condition aggravated [Not Recovered/Not Resolved]
  - Pruritus [Unknown]
  - Dry skin [Unknown]
  - Skin exfoliation [Unknown]
  - Eye swelling [Unknown]

NARRATIVE: CASE EVENT DATE: 20240101
